FAERS Safety Report 11631830 (Version 1)
Quarter: 2015Q4

REPORT INFORMATION
  Report Type: Spontaneous
  Country: NL (occurrence: None)
  Receive Date: 20151013
  Receipt Date: 20151013
  Transmission Date: 20160304
  Serious: Yes (Hospitalization, Other)
  Sender: FDA-Public Use
  Company Number: 2015NL0598

PATIENT
  Age: 20 Year
  Sex: Female

DRUGS (3)
  1. KINERET [Suspect]
     Active Substance: ANAKINRA
     Indication: CHRONIC INFANTILE NEUROLOGICAL CUTANEOUS AND ARTICULAR SYNDROME
     Dates: start: 2004, end: 2012
  2. NSAIDS [Concomitant]
     Active Substance: UNSPECIFIED INGREDIENT
  3. CANAKINUMAB [Concomitant]
     Active Substance: CANAKINUMAB

REACTIONS (3)
  - Vesicoureteric reflux [None]
  - Chronic kidney disease [None]
  - Urinary tract infection [None]
